FAERS Safety Report 8373412-1 (Version None)
Quarter: 2012Q2

REPORT INFORMATION
  Report Type: 
  Country: None (occurrence: None)
  Receive Date: 20120521
  Receipt Date: 20111024
  Transmission Date: 20120825
  Serious: No
  Sender: FDA-Public Use
  Company Number: US-TEVA-2011005506

PATIENT
  Sex: Male

DRUGS (3)
  1. BENADRYL [Concomitant]
  2. TREANDA [Suspect]
     Indication: NON-HODGKIN'S LYMPHOMA
     Route: 042
  3. DECADRON [Concomitant]

REACTIONS (2)
  - INJECTION SITE OEDEMA [None]
  - INJECTION SITE ERYTHEMA [None]
